FAERS Safety Report 6212226-5 (Version None)
Quarter: 2009Q2

REPORT INFORMATION
  Report Type: 
  Country: None (occurrence: None)
  Receive Date: 20090602
  Receipt Date: 20090521
  Transmission Date: 20091009
  Serious: Yes (Hospitalization)
  Sender: FDA-Public Use
  Company Number: JP-SANOFI-SYNTHELABO-A01200904326

PATIENT
  Sex: Female
  Weight: 42 kg

DRUGS (16)
  1. DIGOXIN [Concomitant]
     Indication: ATRIAL FIBRILLATION
     Dosage: UNK
     Route: 065
     Dates: start: 20090413
  2. DUROTEP [Concomitant]
     Indication: BACK PAIN
     Dosage: 2.1 MG
     Route: 065
     Dates: start: 20090413, end: 20090414
  3. MAGLAX [Concomitant]
     Indication: DRUG USE FOR UNKNOWN INDICATION
     Dosage: UNK
     Route: 065
     Dates: start: 20090410, end: 20090414
  4. ATARAX [Concomitant]
     Indication: DRUG USE FOR UNKNOWN INDICATION
     Dosage: UNK
     Route: 065
     Dates: start: 20090412, end: 20090412
  5. SOSEGON [Concomitant]
     Indication: BACK PAIN
     Dosage: 15 MG
     Route: 065
     Dates: start: 20090411, end: 20090412
  6. SEISHOKU [Concomitant]
     Indication: DRUG USE FOR UNKNOWN INDICATION
     Dosage: UNK
     Route: 065
     Dates: start: 20090410, end: 20090414
  7. LACTEC [Concomitant]
     Indication: DRUG USE FOR UNKNOWN INDICATION
     Dosage: UNK
     Route: 065
     Dates: start: 20090410, end: 20090414
  8. MAXIPIME [Concomitant]
     Indication: DRUG USE FOR UNKNOWN INDICATION
     Dosage: UNK
     Route: 065
     Dates: start: 20090410, end: 20090414
  9. KASHIMITAL [Concomitant]
     Indication: DRUG USE FOR UNKNOWN INDICATION
     Dosage: UNK
     Route: 065
     Dates: start: 20090410, end: 20090414
  10. VOLTAREN [Concomitant]
     Indication: DRUG USE FOR UNKNOWN INDICATION
     Dosage: UNK
     Route: 054
     Dates: start: 20090413, end: 20090414
  11. YOKUKAN-SAN [Concomitant]
     Indication: DRUG USE FOR UNKNOWN INDICATION
     Dosage: UNK
     Route: 048
     Dates: start: 20090413, end: 20090414
  12. DEPAS [Concomitant]
     Indication: DRUG USE FOR UNKNOWN INDICATION
     Dosage: UNK
     Route: 048
     Dates: start: 20090413, end: 20090414
  13. LOXONIN [Concomitant]
     Indication: DRUG USE FOR UNKNOWN INDICATION
     Dosage: UNK
     Route: 048
     Dates: start: 20090410, end: 20090414
  14. DOGMATYL [Suspect]
     Indication: SEDATION
     Route: 048
     Dates: start: 20090410, end: 20090413
  15. SERENACE [Concomitant]
     Indication: ANXIETY
     Dosage: 0.75 MG
     Route: 065
     Dates: start: 20090410, end: 20090410
  16. MYSLEE [Suspect]
     Indication: INSOMNIA
     Dosage: 10 MG
     Route: 048
     Dates: start: 20090413, end: 20090413

REACTIONS (1)
  - HYPERTHERMIA MALIGNANT [None]
